FAERS Safety Report 12501267 (Version 1)
Quarter: 2016Q2

REPORT INFORMATION
  Report Type: Report from Study
  Country: US (occurrence: US)
  Receive Date: 20160627
  Receipt Date: 20160627
  Transmission Date: 20160815
  Serious: Yes (Other)
  Sender: FDA-Public Use
  Company Number: US-EISAI MEDICAL RESEARCH-EC-2016-018012

PATIENT
  Age: 61 Year
  Sex: Female
  Weight: 69 kg

DRUGS (10)
  1. LEVOTHYROXINE. [Concomitant]
     Active Substance: LEVOTHYROXINE
  2. CALCITRIOL. [Concomitant]
     Active Substance: CALCITRIOL
  3. ERIBULIN [Suspect]
     Active Substance: ERIBULIN
     Indication: BREAST CANCER METASTATIC
     Route: 041
     Dates: start: 20151223, end: 20160502
  4. ERIBULIN [Suspect]
     Active Substance: ERIBULIN
     Route: 041
     Dates: start: 20160518, end: 20160518
  5. HYDROMORPHONE HCL [Concomitant]
     Active Substance: HYDROMORPHONE HYDROCHLORIDE
  6. MIRALAX [Concomitant]
     Active Substance: POLYETHYLENE GLYCOL 3350
  7. ONDANSETRON [Concomitant]
     Active Substance: ONDANSETRON
  8. EMLA [Concomitant]
     Active Substance: LIDOCAINE\PRILOCAINE
  9. ERIBULIN [Suspect]
     Active Substance: ERIBULIN
     Route: 041
     Dates: start: 20160608, end: 20160608
  10. CALCIUM 500 + VITAMIN D [Concomitant]

REACTIONS (1)
  - Neutrophil count decreased [Recovered/Resolved]

NARRATIVE: CASE EVENT DATE: 20160212
